FAERS Safety Report 6006875-7 (Version None)
Quarter: 2008Q4

REPORT INFORMATION
  Report Type: 
  Country: None (occurrence: None)
  Receive Date: 20081217
  Receipt Date: 20071112
  Transmission Date: 20090506
  Serious: No
  Sender: FDA-Public Use
  Company Number: US-ASTRAZENECA-2007UW26307

PATIENT
  Age: 71 Year
  Sex: Male
  Weight: 152 kg

DRUGS (5)
  1. CRESTOR [Suspect]
     Indication: BLOOD CHOLESTEROL INCREASED
     Route: 048
     Dates: start: 20071001
  2. FLOMAX [Concomitant]
  3. ADVIL LIQUI-GELS [Concomitant]
  4. WATER PILL [Concomitant]
  5. POTASSIUM CHLORIDE [Concomitant]

REACTIONS (2)
  - POLLAKIURIA [None]
  - URINARY INCONTINENCE [None]
